FAERS Safety Report 20373157 (Version 2)
Quarter: 2022Q1

REPORT INFORMATION
  Report Type: Spontaneous
  Country: BR (occurrence: BR)
  Receive Date: 20220125
  Receipt Date: 20220223
  Transmission Date: 20220423
  Serious: Yes (Death, Other)
  Sender: FDA-Public Use
  Company Number: BR-NOVOPROD-884509

PATIENT
  Age: 66 Year
  Sex: Female

DRUGS (1)
  1. VICTOZA [Suspect]
     Active Substance: LIRAGLUTIDE
     Indication: Overweight
     Dosage: 0.6 MG, QD (WITH PROGRESSIVE WEEKLY INCREASE)
     Route: 065
     Dates: start: 20211203

REACTIONS (7)
  - Acute kidney injury [Fatal]
  - Pancreatitis [Fatal]
  - Cholelithiasis [Fatal]
  - Cholecystitis [Unknown]
  - Nausea [Unknown]
  - Decreased appetite [Unknown]
  - Off label use [Unknown]

NARRATIVE: CASE EVENT DATE: 20211201
